FAERS Safety Report 9290793 (Version 1)
Quarter: 2013Q2

REPORT INFORMATION
  Report Type: Spontaneous
  Country: US (occurrence: US)
  Receive Date: 20130515
  Receipt Date: 20130515
  Transmission Date: 20140414
  Serious: Yes (Hospitalization)
  Sender: FDA-Public Use
  Company Number: US-BAXTER-2013BAX016242

PATIENT
  Age: 74 Year
  Sex: Male

DRUGS (2)
  1. DIANEAL LOW CALCIUM [Suspect]
     Indication: PERITONEAL DIALYSIS
     Route: 033
     Dates: start: 201209, end: 201304
  2. DIANEAL LOW CALCIUM [Suspect]
     Route: 033
     Dates: start: 201209, end: 201304

REACTIONS (2)
  - Mental status changes [Recovering/Resolving]
  - Hyperkalaemia [Recovering/Resolving]
